FAERS Safety Report 7623002-0 (Version None)
Quarter: 2011Q3

REPORT INFORMATION
  Report Type: 
  Country: None (occurrence: None)
  Receive Date: 20110720
  Receipt Date: 20110711
  Transmission Date: 20111222
  Serious: Yes (Hospitalization)
  Sender: FDA-Public Use
  Company Number: CA-JNJFOC-20110706005

PATIENT
  Sex: Female
  Weight: 94 kg

DRUGS (1)
  1. REMICADE [Suspect]
     Indication: CROHN'S DISEASE
     Route: 042

REACTIONS (5)
  - SKIN LESION [None]
  - DIARRHOEA HAEMORRHAGIC [None]
  - HAEMATOMA [None]
  - ABDOMINAL PAIN [None]
  - ACCIDENT [None]
